FAERS Safety Report 5928809-3 (Version None)
Quarter: 2008Q4

REPORT INFORMATION
  Report Type: 
  Country: None (occurrence: None)
  Receive Date: 20081020
  Receipt Date: 20080530
  Transmission Date: 20090506
  Serious: Yes (Hospitalization)
  Sender: FDA-Public Use
  Company Number: CL000292008

PATIENT
  Age: 3 Year
  Sex: Male

DRUGS (3)
  1. CIPROFLOXACIN [Suspect]
     Dosage: 210 MG
  2. SULFASALAZINE [Suspect]
  3. CLINDAMYCIN HCL [Concomitant]

REACTIONS (1)
  - HALLUCINATION [None]
